FAERS Safety Report 23530424 (Version 1)
Quarter: 2024Q1

REPORT INFORMATION
  Report Type: Spontaneous
  Country: US (occurrence: US)
  Receive Date: 20240216
  Receipt Date: 20240216
  Transmission Date: 20240409
  Serious: Yes (Hospitalization)
  Sender: FDA-Public Use
  Company Number: US-DRL-USA-SPO/USA/24/0002588

PATIENT
  Age: 63 Year
  Sex: Male

DRUGS (1)
  1. CLOZAPINE [Suspect]
     Active Substance: CLOZAPINE
     Indication: Product used for unknown indication
     Dosage: 200 MG IN THE MORNING AND 300MG AT NIGHT.
     Route: 048

REACTIONS (4)
  - Dyspnoea [Unknown]
  - Respiratory failure [Unknown]
  - Pneumonia [Unknown]
  - Product dose omission issue [Unknown]
